FAERS Safety Report 6138133-4 (Version None)
Quarter: 2009Q1

REPORT INFORMATION
  Report Type: 
  Country: None (occurrence: None)
  Receive Date: 20090327
  Receipt Date: 20090316
  Transmission Date: 20090719
  Serious: Yes (Hospitalization, Other)
  Sender: FDA-Public Use
  Company Number: 2009AP001109

PATIENT
  Age: 75 Year
  Sex: Female

DRUGS (2)
  1. LOVASTATIN [Suspect]
     Indication: HYPERLIPIDAEMIA
     Dosage: 40 MG;QD
  2. SITAGLIPTIN PHOSPHATE [Suspect]
     Indication: DIABETES MELLITUS
     Dosage: 100 MG;QD

REACTIONS (4)
  - ANXIETY [None]
  - DRUG INTERACTION [None]
  - HYPERTENSION [None]
  - RHABDOMYOLYSIS [None]
